FAERS Safety Report 6341857-7 (Version None)
Quarter: 2009Q3

REPORT INFORMATION
  Report Type: 
  Country: None (occurrence: None)
  Receive Date: 20090904
  Receipt Date: 20090824
  Transmission Date: 20100115
  Serious: Yes (Hospitalization)
  Sender: FDA-Public Use
  Company Number: DE-AMGEN-US345912

PATIENT
  Sex: Female

DRUGS (6)
  1. ENBREL [Suspect]
     Indication: RHEUMATOID ARTHRITIS
     Route: 058
     Dates: start: 20031125, end: 20040226
  2. ENBREL [Suspect]
     Route: 058
     Dates: start: 20040705
  3. TRIAMCINOLONE [Suspect]
     Indication: RHEUMATOID ARTHRITIS
     Dosage: UNKNOWN
  4. DECORTIN [Suspect]
     Indication: RHEUMATOID ARTHRITIS
     Dosage: 7.5 MG DAILY
     Dates: end: 20040426
  5. DECORTIN [Suspect]
     Dosage: 20 MG DAILY
     Dates: start: 20040427, end: 20040815
  6. DECORTIN [Suspect]
     Dosage: 10 MG DAILY
     Dates: start: 20040816

REACTIONS (2)
  - CAESAREAN SECTION [None]
  - DRUG EXPOSURE DURING PREGNANCY [None]
